FAERS Safety Report 4896250-0 (Version None)
Quarter: 2006Q1

REPORT INFORMATION
  Report Type: 
  Country: None (occurrence: None)
  Receive Date: 20060126
  Receipt Date: 20060120
  Transmission Date: 20060701
  Serious: Yes (Other)
  Sender: FDA-Public Use
  Company Number: 006482

PATIENT
  Sex: Female

DRUGS (4)
  1. MEDROXYPROGESTERONE ACETATE [Suspect]
     Dosage: ORAL
     Route: 048
     Dates: start: 19880401, end: 19970201
  2. PREMARIN [Suspect]
     Dosage: ORAL
     Route: 048
     Dates: start: 19880401, end: 19970201
  3. PROVERA [Suspect]
     Dosage: ORAL
     Route: 048
     Dates: start: 19880401, end: 19970201
  4. PREMPRO [Suspect]
     Dosage: ORAL
     Route: 048
     Dates: start: 19970201

REACTIONS (1)
  - BREAST CANCER [None]
